FAERS Safety Report 11635750 (Version 1)
Quarter: 2015Q4

REPORT INFORMATION
  Report Type: Spontaneous
  Country: US (occurrence: US)
  Receive Date: 20151016
  Receipt Date: 20151016
  Transmission Date: 20160304
  Serious: No
  Sender: FDA-Public Use
  Company Number: US-SUN PHARMACEUTICAL INDUSTRIES LTD-2015SUN00308

PATIENT

DRUGS (2)
  1. GABAPENTIN TABLET 600 MG [Suspect]
     Active Substance: GABAPENTIN
     Indication: NEURALGIA
     Dosage: 600 MG, QID
     Route: 065
     Dates: start: 2013, end: 201410
  2. BACLOFEN. [Concomitant]
     Active Substance: BACLOFEN
     Dosage: 25 MG, UNK
     Dates: start: 201312

REACTIONS (1)
  - Drug ineffective [Unknown]
